FAERS Safety Report 17215146 (Version 1)
Quarter: 2019Q4

REPORT INFORMATION
  Report Type: Spontaneous
  Country: NZ (occurrence: NZ)
  Receive Date: 20191230
  Receipt Date: 20191230
  Transmission Date: 20200122
  Serious: Yes (Hospitalization)
  Sender: FDA-Public Use
  Company Number: NZ-MYLANLABS-2019M1130271

PATIENT
  Age: 48 Year
  Sex: Female

DRUGS (1)
  1. LEVONORGESTREL. [Suspect]
     Active Substance: LEVONORGESTREL
     Indication: PRODUCT USED FOR UNKNOWN INDICATION
     Route: 015

REACTIONS (4)
  - Coronary artery dissection [Recovered/Resolved]
  - Acute myocardial infarction [Recovered/Resolved]
  - Aortic intramural haematoma [Recovered/Resolved]
  - Coronary artery stenosis [Recovered/Resolved]
